FAERS Safety Report 10273542 (Version 1)
Quarter: 2014Q2

REPORT INFORMATION
  Report Type: Spontaneous
  Country: US (occurrence: None)
  Receive Date: 20140630
  Receipt Date: 20140630
  Transmission Date: 20141212
  Serious: Yes (Life-Threatening, Hospitalization, Disabling)
  Sender: FDA-Public Use
  Company Number: None

PATIENT
  Age: 21 Year
  Sex: Female
  Weight: 116.12 kg

DRUGS (1)
  1. NEXPLANON [Suspect]
     Indication: CONTRACEPTION
     Dosage: 68 MG SUBDERMAL IMPLANT  GIVEN INTO/UNTER THE SKIN
     Route: 059
     Dates: start: 20140624, end: 20140627

REACTIONS (8)
  - Hypoaesthesia [None]
  - Haemorrhage [None]
  - Blood pressure diastolic increased [None]
  - Device failure [None]
  - Migraine [None]
  - Pain in extremity [None]
  - Monoplegia [None]
  - Tendon disorder [None]
